FAERS Safety Report 4735040-6 (Version None)
Quarter: 2005Q3

REPORT INFORMATION
  Report Type: 
  Country: None (occurrence: None)
  Receive Date: 20050804
  Receipt Date: 20050728
  Transmission Date: 20060218
  Serious: Yes (Disabling)
  Sender: FDA-Public Use
  Company Number: GB-MERCK-0507GBR00217

PATIENT
  Age: 54 Year
  Sex: Female

DRUGS (4)
  1. FOSAMAX [Suspect]
     Route: 048
     Dates: end: 20050601
  2. FOSAMAX [Suspect]
     Route: 048
     Dates: start: 20050601
  3. ALENDRONATE SODIUM [Suspect]
     Route: 048
     Dates: start: 20050609, end: 20050629
  4. CALCIUM (UNSPECIFIED) [Concomitant]
     Route: 048

REACTIONS (3)
  - DRUG INEFFECTIVE [None]
  - HYPOKINESIA [None]
  - PAIN [None]
